FAERS Safety Report 6294655-7 (Version None)
Quarter: 2009Q3

REPORT INFORMATION
  Report Type: 
  Country: None (occurrence: None)
  Receive Date: 20090731
  Receipt Date: 20090731
  Transmission Date: 20100115
  Serious: Yes (Other)
  Sender: FDA-Public Use
  Company Number: None

PATIENT
  Age: 63 Year
  Sex: Female
  Weight: 97.5234 kg

DRUGS (2)
  1. ZICAM COLD REMEDY GEL SWABS ZINCUM GLUCONICUM 2X ZICAM LLC [Suspect]
     Indication: NASOPHARYNGITIS
     Dosage: 1 TUBE/SWAB EVERY 4 HOURS NASAL
     Route: 045
     Dates: start: 20081201, end: 20090331
  2. ZICAM COLD REMEDY GEL SWABS ZINCUM GLUCONICUM 2X ZICAM LLC [Suspect]
     Indication: PROPHYLAXIS
     Dosage: 1 TUBE/SWAB EVERY 4 HOURS NASAL
     Route: 045
     Dates: start: 20081201, end: 20090331

REACTIONS (1)
  - ANOSMIA [None]
